FAERS Safety Report 19867011 (Version 2)
Quarter: 2021Q3

REPORT INFORMATION
  Report Type: Spontaneous
  Country: CN (occurrence: CN)
  Receive Date: 20210922
  Receipt Date: 20210930
  Transmission Date: 20211014
  Serious: Yes (Other)
  Sender: FDA-Public Use
  Company Number: CN-ROCHE-2913571

PATIENT
  Age: 75 Year
  Sex: Female

DRUGS (19)
  1. DEXAMETHASONE. [Concomitant]
     Active Substance: DEXAMETHASONE
     Dosage: ON 30 DEC 2019, 01 FEB 2020 AND 04 APR 2020, ON DAY 1?5
  2. MABTHERA [Suspect]
     Active Substance: RITUXIMAB
     Dosage: ON 03/DEC/2013 AND 20/FEB/2014
     Route: 065
  3. FLUCONAZOLE. [Concomitant]
     Active Substance: FLUCONAZOLE
     Indication: PNEUMONIA
     Dates: start: 2021
  4. DIAMMONIUM GLYCYRRHIZINATE [Concomitant]
     Active Substance: HERBALS\DIAMMONIUM GLYCYRRHIZINATE
     Dates: start: 2021
  5. CYCLOPHOSPHAMIDE. [Concomitant]
     Active Substance: CYCLOPHOSPHAMIDE
     Dosage: ON 03 JUN 2013, 30 JUN 2013, 29 JUL 2013 AND 03 SEP 2013, ON DAY 1
  6. VINDESINE [Concomitant]
     Active Substance: VINDESINE
     Dosage: ON 03 JUN 2013, 30 JUN 2013, 29 JUL 2013 AND 03 SEP 2013, ON DAY 1
  7. VINCRISTINE [Concomitant]
     Active Substance: VINCRISTINE
     Dosage: ON 30 DEC 2019, 01 FEB 2020 AND 04 APR 2020, ON DAY 1
  8. DOXORUBICIN HYDROCHLORIDE. [Concomitant]
     Active Substance: DOXORUBICIN HYDROCHLORIDE
     Dosage: ON 30 DEC 2019, 01 FEB 2020 AND 04 APR 2020, ON DAY 1
  9. ERTAPENEM. [Concomitant]
     Active Substance: ERTAPENEM SODIUM
     Indication: PNEUMONIA
     Dates: start: 2021
  10. BENDAMUSTINE [Concomitant]
     Active Substance: BENDAMUSTINE
     Dosage: ON DAY 2?3
     Dates: start: 20210827
  11. MABTHERA [Suspect]
     Active Substance: RITUXIMAB
     Dosage: ON DAY 1
     Route: 065
     Dates: start: 20131001
  12. CHLORAMBUCIL [Concomitant]
     Active Substance: CHLORAMBUCIL
     Dates: start: 20131001
  13. MABTHERA [Suspect]
     Active Substance: RITUXIMAB
     Indication: MARGINAL ZONE LYMPHOMA
     Dosage: ON 03/JUN/2013, 30/JUN/2013, 29/JUL/2013 AND 03/SEP/2013, ON DAY 0
     Route: 065
  14. CYCLOPHOSPHAMIDE. [Concomitant]
     Active Substance: CYCLOPHOSPHAMIDE
     Dosage: ON 30 DEC 2019, 01 FEB 2020 AND 04 APR 2020, ON DAY 1
  15. PREDNISONE ACETATE [Concomitant]
     Active Substance: PREDNISONE ACETATE
     Dosage: ON 03 JUN 2013, 30 JUN 2013, 29 JUL 2013 AND 03 SEP 2013, ON DAY 1?5
  16. DEXAMETHASONE. [Concomitant]
     Active Substance: DEXAMETHASONE
     Dates: start: 2019
  17. MABTHERA [Suspect]
     Active Substance: RITUXIMAB
     Dosage: ON 30/DEC/2019, 01/FEB/2020 AND 04/APR/2020, ON DAY 0
     Route: 065
  18. GAZYVA [Suspect]
     Active Substance: OBINUTUZUMAB
     Indication: MARGINAL ZONE LYMPHOMA
     Dosage: ON DAY 1 AND DAY 8
     Route: 042
     Dates: start: 20210827
  19. DOXORUBICIN HYDROCHLORIDE. [Concomitant]
     Active Substance: DOXORUBICIN HYDROCHLORIDE
     Dosage: ON 03 JUN 2013, 30 JUN 2013, 29 JUL 2013 AND 03 SEP 2013, ON DAY 1

REACTIONS (7)
  - Haemophagocytic lymphohistiocytosis [Unknown]
  - Infusion related reaction [Unknown]
  - Off label use [Unknown]
  - Bone pain [Unknown]
  - Pyrexia [Unknown]
  - Myelosuppression [Recovered/Resolved]
  - Neoplasm recurrence [Unknown]

NARRATIVE: CASE EVENT DATE: 201911
